FAERS Safety Report 6084553-6 (Version None)
Quarter: 2009Q1

REPORT INFORMATION
  Report Type: 
  Country: None (occurrence: None)
  Receive Date: 20090219
  Receipt Date: 20090210
  Transmission Date: 20090719
  Serious: Yes (Disabling, Other)
  Sender: FDA-Public Use
  Company Number: PR-BAXTER-2009BH002299

PATIENT
  Age: 65 Year
  Sex: Female
  Weight: 45 kg

DRUGS (3)
  1. HEPARIN SODIUM INJECTION [Suspect]
     Indication: CORONARY ARTERY BYPASS
     Route: 065
     Dates: start: 20070814
  2. LIPITOR [Concomitant]
     Indication: DRUG USE FOR UNKNOWN INDICATION
     Route: 065
  3. CELEBREX [Concomitant]
     Indication: DRUG USE FOR UNKNOWN INDICATION
     Route: 065

REACTIONS (7)
  - ANGIOPATHY [None]
  - DIZZINESS [None]
  - HEPARIN-INDUCED THROMBOCYTOPENIA [None]
  - NAUSEA [None]
  - RENAL FAILURE [None]
  - RESPIRATORY FAILURE [None]
  - SKIN EXFOLIATION [None]
